FAERS Safety Report 22613114 (Version 1)
Quarter: 2023Q2

REPORT INFORMATION
  Report Type: Other
  Country: IR (occurrence: None)
  Receive Date: 20230618
  Receipt Date: 20230618
  Transmission Date: 20230721
  Serious: Yes (Hospitalization)
  Sender: FDA-Public Use
  Company Number: IR-ROCHE-3369432

PATIENT
  Age: 27 Year
  Sex: Male

DRUGS (14)
  1. RITUXIMAB [Suspect]
     Active Substance: RITUXIMAB
     Indication: Multiple sclerosis
     Route: 041
     Dates: end: 202202
  2. PREDNISOLONE [Concomitant]
     Active Substance: PREDNISOLONE
  3. SALMETEROL [Concomitant]
     Active Substance: SALMETEROL
  4. FLUTICASONE [Concomitant]
     Active Substance: FLUTICASONE
     Dosage: INHALER
  5. MONTELUKAST [Concomitant]
     Active Substance: MONTELUKAST SODIUM
  6. ACETYLCYSTEINE [Concomitant]
     Active Substance: ACETYLCYSTEINE
  7. ASPIRIN [Concomitant]
     Active Substance: ASPIRIN
  8. CEFTRIAXONE [Concomitant]
     Active Substance: CEFTRIAXONE
  9. PIPERACILLIN AND TAZOBACTAM [Concomitant]
     Active Substance: PIPERACILLIN SODIUM\TAZOBACTAM SODIUM
  10. LEVOFLOXACIN [Concomitant]
     Active Substance: LEVOFLOXACIN
  11. VANCOMYCIN [Concomitant]
     Active Substance: VANCOMYCIN
  12. IMIPENEM [Concomitant]
     Active Substance: IMIPENEM
  13. LINEZOLID [Concomitant]
     Active Substance: LINEZOLID
  14. DEXAMETHASONE [Concomitant]
     Active Substance: DEXAMETHASONE

REACTIONS (2)
  - Pneumocystis jirovecii pneumonia [Unknown]
  - COVID-19 [Recovered/Resolved]
